FAERS Safety Report 13688244 (Version 1)
Quarter: 2017Q2

REPORT INFORMATION
  Report Type: Other
  Country: US (occurrence: US)
  Receive Date: 20170626
  Receipt Date: 20170626
  Transmission Date: 20170830
  Serious: Yes (Death, Other)
  Sender: FDA-Public Use
  Company Number: US-VELOXIS PHARMACEUTICALS-2022494

PATIENT
  Age: 54 Year
  Sex: Male

DRUGS (6)
  1. CYCLOPHOSPHAMIDE. [Suspect]
     Active Substance: CYCLOPHOSPHAMIDE
  2. HEPARIN [Concomitant]
     Active Substance: HEPARIN SODIUM
  3. ENVARSUS XR [Suspect]
     Active Substance: TACROLIMUS
     Indication: PRODUCT USED FOR UNKNOWN INDICATION
  4. ASPIRIN. [Concomitant]
     Active Substance: ASPIRIN
  5. CLOPIDOGREL [Concomitant]
     Active Substance: CLOPIDOGREL BISULFATE
  6. TICAGRELOR [Concomitant]
     Active Substance: TICAGRELOR

REACTIONS (5)
  - Transient ischaemic attack [Unknown]
  - Cerebral infarction [Unknown]
  - Chronic graft versus host disease [Unknown]
  - Meningitis bacterial [Fatal]
  - Graft versus host disease in skin [Unknown]
